FAERS Safety Report 7940058-6 (Version None)
Quarter: 2011Q4

REPORT INFORMATION
  Report Type: 
  Country: None (occurrence: None)
  Receive Date: 20111125
  Receipt Date: 20111111
  Transmission Date: 20120403
  Serious: Yes (Other)
  Sender: FDA-Public Use
  Company Number: US-SANOFI-AVENTIS-2011SA074747

PATIENT
  Age: 59 Year
  Sex: Female

DRUGS (2)
  1. LANTUS [Suspect]
     Dosage: DOSE:40 UNIT(S)
     Route: 058
     Dates: start: 20110901
  2. SOLOSTAR [Suspect]
     Dates: start: 20110901

REACTIONS (10)
  - PALPITATIONS [None]
  - ANGINA PECTORIS [None]
  - FATIGUE [None]
  - SINUS DISORDER [None]
  - INJECTION SITE HAEMATOMA [None]
  - INSOMNIA [None]
  - EMOTIONAL DISTRESS [None]
  - VISUAL IMPAIRMENT [None]
  - DYSPNOEA [None]
  - INJECTION SITE SWELLING [None]
